FAERS Safety Report 8387495-6 (Version None)
Quarter: 2012Q2

REPORT INFORMATION
  Report Type: 
  Country: None (occurrence: None)
  Receive Date: 20120525
  Receipt Date: 20120521
  Transmission Date: 20120825
  Serious: Yes (Other)
  Sender: FDA-Public Use
  Company Number: PHFR2012GB000671

PATIENT
  Sex: Male

DRUGS (6)
  1. CLOZARIL [Suspect]
     Dosage: 400 MG, DAILY
     Dates: start: 20120125, end: 20120312
  2. ZOPICLON [Concomitant]
     Indication: INSOMNIA
     Dosage: 7.5 MG, DAILY
  3. THIAMINE [Concomitant]
     Dosage: 100 MG, DAILY
     Route: 048
  4. VITAMIN A [Concomitant]
     Dosage: UNK UKN, UNK
  5. LANSOPRAZOLE [Concomitant]
     Indication: GASTRITIS
     Dosage: 30 MG, UNK
  6. CLOZARIL [Suspect]
     Indication: SCHIZOPHRENIA
     Dosage: 500 MG, DAILY
     Route: 048
     Dates: start: 20010515

REACTIONS (20)
  - HEPATITIS C [None]
  - HYPERSPLENISM [None]
  - NEUTROPENIA [None]
  - WHITE BLOOD CELL COUNT DECREASED [None]
  - PORTAL HYPERTENSION [None]
  - GENERAL PHYSICAL CONDITION ABNORMAL [None]
  - HEPATIC FAILURE [None]
  - PERIORBITAL HAEMATOMA [None]
  - JAW FRACTURE [None]
  - ALCOHOLISM [None]
  - MALAISE [None]
  - THROMBOCYTOPENIA [None]
  - LIVER FUNCTION TEST ABNORMAL [None]
  - CONFUSIONAL STATE [None]
  - HYPOTENSION [None]
  - NEUTROPHIL COUNT DECREASED [None]
  - ANTIPSYCHOTIC DRUG LEVEL INCREASED [None]
  - FALL [None]
  - LYMPHOCYTE COUNT DECREASED [None]
  - PLATELET COUNT DECREASED [None]
